FAERS Safety Report 15378150 (Version 1)
Quarter: 2018Q3

REPORT INFORMATION
  Report Type: Spontaneous
  Country: US (occurrence: US)
  Receive Date: 20180913
  Receipt Date: 20180913
  Transmission Date: 20181010
  Serious: No
  Sender: FDA-Public Use
  Company Number: US-ALLERGAN-1822284US

PATIENT
  Sex: Female
  Weight: 85.71 kg

DRUGS (3)
  1. VANIQA [Suspect]
     Active Substance: EFLORNITHINE HYDROCHLORIDE
     Indication: HYPOTRICHOSIS
     Dosage: UNK, QD
     Route: 061
     Dates: start: 2015, end: 201802
  2. NORTRIPTYLINE [Concomitant]
     Active Substance: NORTRIPTYLINE
     Indication: FIBROMYALGIA
     Dosage: UNK
     Route: 048
  3. LOSARTIN [Concomitant]
     Active Substance: LOSARTAN
     Indication: HYPERTENSION
     Dosage: UNK
     Route: 048

REACTIONS (5)
  - Drug ineffective [Unknown]
  - Expired product administered [Unknown]
  - Rosacea [Recovered/Resolved]
  - Folliculitis [Recovered/Resolved]
  - Ingrown hair [Recovered/Resolved]
